FAERS Safety Report 25665753 (Version 1)
Quarter: 2025Q3

REPORT INFORMATION
  Report Type: Spontaneous
  Country: US (occurrence: None)
  Receive Date: 20250811
  Receipt Date: 20250811
  Transmission Date: 20251020
  Serious: Yes (Hospitalization)
  Sender: FDA-CTU
  Company Number: None

PATIENT
  Age: 24 Year
  Sex: Male
  Weight: 65.25 kg

DRUGS (1)
  1. HERBALS\TETRAHYDROCANNABIPHOROL [Suspect]
     Active Substance: HERBALS\TETRAHYDROCANNABIPHOROL
     Route: 048
     Dates: start: 20250809, end: 20250810

REACTIONS (5)
  - Confusional state [None]
  - Panic attack [None]
  - Lactic acidosis [None]
  - Blood glucose increased [None]
  - Renal function test abnormal [None]

NARRATIVE: CASE EVENT DATE: 20250810
